FAERS Safety Report 8070833-1 (Version None)
Quarter: 2012Q1

REPORT INFORMATION
  Report Type: 
  Country: None (occurrence: None)
  Receive Date: 20120125
  Receipt Date: 20120123
  Transmission Date: 20120608
  Serious: Yes (Death, Hospitalization)
  Sender: FDA-Public Use
  Company Number: FR-GLAXOSMITHKLINE-B0634772C

PATIENT
  Sex: Male
  Weight: 84 kg

DRUGS (10)
  1. PACKED RED CELLS [Concomitant]
     Indication: PRODUCT USED FOR UNKNOWN INDICATION
     Route: 065
     Dates: start: 20111014, end: 20111107
  2. BLOOD-TRANSFUSION [Concomitant]
     Route: 065
     Dates: start: 20111014, end: 20111107
  3. BLOOD TRANSFUSION [Concomitant]
     Indication: PRODUCT USED FOR UNKNOWN INDICATION
     Route: 065
     Dates: start: 20111014, end: 20111107
  4. MELPHALAN [Suspect]
     Indication: MULTIPLE MYELOMA
     Dosage: 22MG PER DAY
     Route: 065
     Dates: start: 20090611, end: 20101108
  5. THALIDOMIDE [Suspect]
     Indication: MULTIPLE MYELOMA
     Dosage: 200MG PER DAY
     Route: 048
     Dates: start: 20090611, end: 20101216
  6. FOLIC ACID [Concomitant]
     Indication: PRODUCT USED FOR UNKNOWN INDICATION
     Dosage: 10MG TWICE PER DAY
     Route: 065
  7. PREDNISONE [Suspect]
     Indication: MULTIPLE MYELOMA
     Dosage: 170MG PER DAY
     Route: 065
     Dates: start: 20090611, end: 20101108
  8. ACETAMINOPHEN [Concomitant]
     Indication: HEADACHE
     Route: 065
  9. VITAMIN B-12 [Concomitant]
     Indication: PRODUCT USED FOR UNKNOWN INDICATION
     Dosage: 1VIAL UNKNOWN
     Route: 065
  10. CANDESARTAN CILEXETIL AND HYDROCHLOROTHIAZIDE [Concomitant]
     Indication: PRODUCT USED FOR UNKNOWN INDICATION
     Dosage: 8MG IN THE MORNING
     Route: 065

REACTIONS (2)
  - ACUTE LEUKAEMIA [None]
  - THROMBOCYTOPENIA [None]
